FAERS Safety Report 24734090 (Version 1)
Quarter: 2024Q4

REPORT INFORMATION
  Report Type: Spontaneous
  Country: US (occurrence: US)
  Receive Date: 20241214
  Receipt Date: 20241214
  Transmission Date: 20250114
  Serious: Yes (Hospitalization, Other)
  Sender: DR REDDYS
  Company Number: US-DRL-USA-LIT/USA/24/0018143

PATIENT
  Age: 41 Year
  Sex: Male

DRUGS (3)
  1. NORTRIPTYLINE [Suspect]
     Active Substance: NORTRIPTYLINE
     Indication: Central pain syndrome
  2. GABAPENTIN [Concomitant]
     Active Substance: GABAPENTIN
     Indication: Central pain syndrome
  3. DULOXETINE [Concomitant]
     Active Substance: DULOXETINE
     Indication: Central pain syndrome

REACTIONS (1)
  - Drug ineffective for unapproved indication [Unknown]
